FAERS Safety Report 26092386 (Version 2)
Quarter: 2025Q4

REPORT INFORMATION
  Report Type: Spontaneous
  Country: EU (occurrence: EU)
  Receive Date: 20251126
  Receipt Date: 20251201
  Transmission Date: 20260118
  Serious: Yes (Other)
  Sender: NOVARTIS
  Company Number: EU-002147023-NVSC2025FR181204

PATIENT
  Age: 65 Year
  Sex: Female

DRUGS (3)
  1. VALSARTAN [Suspect]
     Active Substance: VALSARTAN
     Indication: Telangiectasia
     Dosage: UNK
     Route: 065
     Dates: start: 2011
  2. AMLODIPINE [Suspect]
     Active Substance: AMLODIPINE BESYLATE
     Indication: Telangiectasia
     Dosage: UNK
     Route: 065
     Dates: start: 2011
  3. ESOMEPRAZOLE [Concomitant]
     Active Substance: ESOMEPRAZOLE
     Indication: Telangiectasia
     Dosage: UNK
     Route: 065
     Dates: start: 2011

REACTIONS (4)
  - Systemic scleroderma [Unknown]
  - Raynaud^s phenomenon [Unknown]
  - Telangiectasia [Unknown]
  - Off label use [Unknown]

NARRATIVE: CASE EVENT DATE: 20130101
